FAERS Safety Report 4988126-5 (Version None)
Quarter: 2006Q2

REPORT INFORMATION
  Report Type: 
  Country: None (occurrence: None)
  Receive Date: 20060425
  Receipt Date: 20060413
  Transmission Date: 20061013
  Serious: Yes (Hospitalization)
  Sender: FDA-Public Use
  Company Number: FR9202414OCT2002

PATIENT
  Age: 50 Year
  Sex: Male

DRUGS (12)
  1. RAPAMUNE [Suspect]
     Indication: RENAL TRANSPLANT
     Dosage: SEE IMAGE
     Route: 048
     Dates: start: 20020906, end: 20020906
  2. RAPAMUNE [Suspect]
     Indication: RENAL TRANSPLANT
     Dosage: SEE IMAGE
     Route: 048
     Dates: start: 20020907, end: 20020913
  3. RAPAMUNE [Suspect]
     Indication: RENAL TRANSPLANT
     Dosage: SEE IMAGE
     Route: 048
     Dates: start: 20020914, end: 20020927
  4. RAPAMUNE [Suspect]
     Indication: RENAL TRANSPLANT
     Dosage: SEE IMAGE
     Route: 048
     Dates: start: 20020928, end: 20021009
  5. RAPAMUNE [Suspect]
     Indication: RENAL TRANSPLANT
     Dosage: SEE IMAGE
     Route: 048
     Dates: start: 20021010
  6. BACTRIM [Suspect]
     Dosage: ORAL
     Route: 048
     Dates: end: 20020101
  7. CELLCEPT [Suspect]
     Indication: RENAL TRANSPLANT
     Dosage: FROM 500 MG DAILY TO 2 G DAILY ORAL
     Route: 048
     Dates: start: 20020905, end: 20020929
  8. CELLCEPT [Suspect]
     Indication: RENAL TRANSPLANT
     Dosage: FROM 500 MG DAILY TO 2 G DAILY ORAL
     Route: 048
     Dates: start: 20020930
  9. VALACYCLOVIR HCL [Suspect]
     Dosage: UNKNOWN
     Route: 065
     Dates: end: 20020101
  10. THYMOGLOBULIN [Concomitant]
  11. SOLU-MEDROL [Concomitant]
  12. PREDNISONE TAB [Concomitant]

REACTIONS (5)
  - ISCHAEMIA [None]
  - LEUKOPENIA [None]
  - RENAL FAILURE ACUTE [None]
  - THROMBOCYTOPENIA [None]
  - URETERIC STENOSIS [None]
